FAERS Safety Report 4352642-X (Version None)
Quarter: 2004Q2

REPORT INFORMATION
  Report Type: 
  Country: None (occurrence: None)
  Receive Date: 20040504
  Receipt Date: 20040426
  Transmission Date: 20050107
  Serious: Yes (Other)
  Sender: FDA-Public Use
  Company Number: GB-MERCK-0404GBR00194

PATIENT
  Age: 65 Year
  Sex: Male

DRUGS (5)
  1. ASPIRIN [Concomitant]
     Indication: PROPHYLAXIS
     Route: 048
  2. ATENOLOL [Concomitant]
     Indication: PROPHYLAXIS
     Route: 048
  3. LORAZEPAM [Concomitant]
     Indication: PROPHYLAXIS
     Route: 048
  4. NITROGLYCERIN [Concomitant]
     Route: 060
  5. ZOCOR [Suspect]
     Indication: HYPERCHOLESTEROLAEMIA
     Route: 048
     Dates: start: 20030601, end: 20031101

REACTIONS (3)
  - CYCLOTHYMIC DISORDER [None]
  - DEPRESSION [None]
  - SUICIDAL IDEATION [None]
